FAERS Safety Report 5933686-0 (Version None)
Quarter: 2008Q4

REPORT INFORMATION
  Report Type: 
  Country: None (occurrence: None)
  Receive Date: 20081024
  Receipt Date: 20081016
  Transmission Date: 20090506
  Serious: Yes (Other)
  Sender: FDA-Public Use
  Company Number: 08H-028-0315070-00

PATIENT
  Age: 39 Year
  Sex: Female
  Weight: 75 kg

DRUGS (6)
  1. SUCCINYLCHOLINE CHLORIDE [Suspect]
     Indication: MUSCLE RELAXANT THERAPY
     Dosage: 100 MG,
  2. OXYGEN (OXYGEN) [Concomitant]
  3. FENTANYL-100 [Concomitant]
  4. LIDOCAINE [Concomitant]
  5. PROPOFOL [Concomitant]
  6. SEVOFLURANE [Concomitant]

REACTIONS (1)
  - JOINT DISLOCATION [None]
